FAERS Safety Report 5244540-4 (Version None)
Quarter: 2007Q1

REPORT INFORMATION
  Report Type: 
  Country: None (occurrence: None)
  Receive Date: 20070222
  Receipt Date: 20070212
  Transmission Date: 20070707
  Serious: Yes (Hospitalization)
  Sender: FDA-Public Use
  Company Number: FR-SANOFI-SYNTHELABO-A02200602561

PATIENT
  Age: 82 Year
  Sex: Female
  Weight: 45 kg

DRUGS (6)
  1. FASTURTEC [Suspect]
     Indication: DRUG USE FOR UNKNOWN INDICATION
     Dosage: UNK
     Route: 042
     Dates: start: 20060619, end: 20060619
  2. PAROXETINE HCL [Concomitant]
     Route: 065
  3. IRBESARTAN [Concomitant]
     Dosage: UNK
     Route: 048
  4. FORLAX [Concomitant]
     Dosage: UNK
     Route: 048
  5. AMLODIPINE [Concomitant]
     Dosage: UNK
     Route: 048
  6. VALIUM [Concomitant]
     Dosage: UNK
     Route: 065

REACTIONS (2)
  - CHOREOATHETOSIS [None]
  - MENTAL IMPAIRMENT [None]
